FAERS Safety Report 12571092 (Version 1)
Quarter: 2016Q3

REPORT INFORMATION
  Report Type: Spontaneous
  Country: BR (occurrence: BR)
  Receive Date: 20160719
  Receipt Date: 20160719
  Transmission Date: 20161109
  Serious: Yes (Death, Hospitalization)
  Sender: FDA-Public Use
  Company Number: BR-SA-2016SA130142

PATIENT
  Age: 20 Year
  Sex: Female

DRUGS (4)
  1. PREDNISONE. [Suspect]
     Active Substance: PREDNISONE
     Indication: SYSTEMIC LUPUS ERYTHEMATOSUS
     Route: 042
  2. CHLOROQUINE PHOSPHATE. [Suspect]
     Active Substance: CHLOROQUINE PHOSPHATE
     Indication: SYSTEMIC LUPUS ERYTHEMATOSUS
     Route: 065
  3. AZATHIOPRINE. [Suspect]
     Active Substance: AZATHIOPRINE
     Indication: SYSTEMIC LUPUS ERYTHEMATOSUS
     Route: 065
  4. METHYLPREDNISOLONE HYDROGEN SUCCINATE [Suspect]
     Active Substance: METHYLPREDNISOLONE HEMISUCCINATE
     Indication: SYSTEMIC LUPUS ERYTHEMATOSUS
     Route: 065

REACTIONS (13)
  - Papilloedema [Fatal]
  - Brain herniation [Fatal]
  - Coma scale abnormal [Fatal]
  - Pneumonia [Fatal]
  - Peritonitis [Fatal]
  - Hepatic necrosis [Fatal]
  - Abdominal pain [Fatal]
  - Sepsis [Fatal]
  - Pyrexia [Fatal]
  - Lung infiltration [Fatal]
  - Coma [Fatal]
  - Disseminated tuberculosis [Fatal]
  - Granulomatous liver disease [Fatal]
